FAERS Safety Report 11870747 (Version 1)
Quarter: 2015Q4

REPORT INFORMATION
  Report Type: Spontaneous
  Country: TR (occurrence: TR)
  Receive Date: 20151228
  Receipt Date: 20151228
  Transmission Date: 20160305
  Serious: Yes (Other)
  Sender: FDA-Public Use
  Company Number: TR-ACTAVIS-2015-28560

PATIENT
  Age: 41 Year
  Sex: Female
  Weight: 67 kg

DRUGS (1)
  1. TADOCEL [Suspect]
     Active Substance: DOCETAXEL
     Indication: PRODUCT USED FOR UNKNOWN INDICATION
     Dosage: 165 MG, DAILY
     Route: 042
     Dates: start: 20140415, end: 20140415

REACTIONS (3)
  - Tachycardia [Recovered/Resolved]
  - Syncope [Recovered/Resolved]
  - Erythema [Recovered/Resolved]

NARRATIVE: CASE EVENT DATE: 20140415
